FAERS Safety Report 8557625-1 (Version None)
Quarter: 2012Q3

REPORT INFORMATION
  Report Type: 
  Country: None (occurrence: None)
  Receive Date: 20120801
  Receipt Date: 20120723
  Transmission Date: 20120928
  Serious: Yes (Hospitalization)
  Sender: FDA-Public Use
  Company Number: US-VERTEX PHARMACEUTICALS INC.-AE-2012-011010

PATIENT
  Sex: Female
  Weight: 50.848 kg

DRUGS (1)
  1. INCIVEK [Suspect]
     Indication: HEPATITIS C
     Dates: end: 20120501

REACTIONS (3)
  - RASH [None]
  - HEART RATE INCREASED [None]
  - MALAISE [None]
